FAERS Safety Report 22101575 (Version 1)
Quarter: 2023Q1

REPORT INFORMATION
  Report Type: Spontaneous
  Country: US (occurrence: US)
  Receive Date: 20230316
  Receipt Date: 20230316
  Transmission Date: 20230417
  Serious: No
  Sender: FDA-Public Use
  Company Number: US-GSK-US2023AMR035773

PATIENT
  Age: 46 Year
  Sex: Female

DRUGS (1)
  1. NUCALA [Suspect]
     Active Substance: MEPOLIZUMAB
     Indication: Nasal polyps
     Dosage: 100 MG/ML, Z (EVERY 4 WEEKS)
     Dates: start: 202206

REACTIONS (2)
  - Rash [Unknown]
  - Acne [Unknown]

NARRATIVE: CASE EVENT DATE: 20221201
